FAERS Safety Report 13333614 (Version 2)
Quarter: 2017Q2

REPORT INFORMATION
  Report Type: Report from Study
  Country: FR (occurrence: FR)
  Receive Date: 20170313
  Receipt Date: 20170509
  Transmission Date: 20170830
  Serious: Yes (Death, Other)
  Sender: FDA-Public Use
  Company Number: FR-ALEXION PHARMACEUTICALS INC-A201610864

PATIENT
  Sex: Male
  Weight: 86 kg

DRUGS (4)
  1. MIDAZOLAM [Concomitant]
     Active Substance: MIDAZOLAM HYDROCHLORIDE
     Indication: PRODUCT USED FOR UNKNOWN INDICATION
     Dosage: 1 MG/H
     Route: 042
     Dates: start: 20151217, end: 20151220
  2. MORPHINE                           /00036302/ [Concomitant]
     Active Substance: MORPHINE
     Indication: PRODUCT USED FOR UNKNOWN INDICATION
     Dosage: 2MG/H
     Route: 042
     Dates: start: 20151217, end: 20151220
  3. SOLIRIS [Suspect]
     Active Substance: ECULIZUMAB
     Indication: HAEMOLYTIC URAEMIC SYNDROME
     Dosage: 900 MG, SINGLE
     Route: 042
     Dates: start: 20151205, end: 20151205
  4. SOLU-MEDROL [Concomitant]
     Active Substance: METHYLPREDNISOLONE SODIUM SUCCINATE
     Indication: GRAFT VERSUS HOST DISEASE
     Dosage: 60 MG, QD
     Route: 065
     Dates: start: 20151127, end: 20151220

REACTIONS (4)
  - General physical health deterioration [Not Recovered/Not Resolved]
  - Dialysis related complication [Unknown]
  - Asthenia [Not Recovered/Not Resolved]
  - End stage renal disease [Fatal]
